FAERS Safety Report 23078620 (Version 1)
Quarter: 2023Q4

REPORT INFORMATION
  Report Type: Spontaneous
  Country: US (occurrence: None)
  Receive Date: 20231017
  Receipt Date: 20231017
  Transmission Date: 20240110
  Serious: Yes (Life-Threatening, Hospitalization, Disabling)
  Sender: FDA-Public Use
  Company Number: None

PATIENT
  Age: 86 Year
  Sex: Male
  Weight: 55.8 kg

DRUGS (2)
  1. KEYTRUDA [Suspect]
     Active Substance: PEMBROLIZUMAB
     Indication: Adrenal gland cancer
     Route: 042
     Dates: end: 20230904
  2. KEYTRUDA [Suspect]
     Active Substance: PEMBROLIZUMAB

REACTIONS (9)
  - Coma [None]
  - Nervous system disorder [None]
  - Arrhythmia [None]
  - Dysphonia [None]
  - Hypoxia [None]
  - Respiratory distress [None]
  - Vomiting [None]
  - Hypotension [None]
  - Hypertension [None]

NARRATIVE: CASE EVENT DATE: 20230907
